FAERS Safety Report 5094087-3 (Version None)
Quarter: 2006Q3

REPORT INFORMATION
  Report Type: 
  Country: None (occurrence: None)
  Receive Date: 20060831
  Receipt Date: 20060824
  Transmission Date: 20061208
  Serious: Yes (Death)
  Sender: FDA-Public Use
  Company Number: US-ROCHE-460964

PATIENT
  Age: 23 Month
  Sex: Male

DRUGS (1)
  1. ACCUTANE [Suspect]
     Indication: NEUROBLASTOMA
     Route: 048

REACTIONS (1)
  - NEUROBLASTOMA [None]
